FAERS Safety Report 12394378 (Version 1)
Quarter: 2016Q2

REPORT INFORMATION
  Report Type: Spontaneous
  Country: US (occurrence: US)
  Receive Date: 20160523
  Receipt Date: 20160523
  Transmission Date: 20160815
  Serious: No
  Sender: FDA-Public Use
  Company Number: US-BAYER-2016-094131

PATIENT

DRUGS (1)
  1. BETASERON [Suspect]
     Active Substance: INTERFERON BETA-1B
     Dosage: UNK

REACTIONS (7)
  - Dysphagia [None]
  - Musculoskeletal stiffness [None]
  - Paraesthesia [None]
  - Speech disorder [None]
  - Hypoaesthesia [None]
  - Pain [None]
  - Muscle spasms [None]

NARRATIVE: CASE EVENT DATE: 201502
